FAERS Safety Report 22396732 (Version 1)
Quarter: 2023Q2

REPORT INFORMATION
  Report Type: Report from Study
  Country: US (occurrence: US)
  Receive Date: 20230601
  Receipt Date: 20230601
  Transmission Date: 20230721
  Serious: Yes (Hospitalization, Other)
  Sender: FDA-Public Use
  Company Number: US-ABBVIE-4326616

PATIENT
  Sex: Male

DRUGS (3)
  1. HUMIRA [Suspect]
     Active Substance: ADALIMUMAB
     Indication: Psoriasis
     Dosage: CITRATE FREE?DRUG END DATE: 2022
     Route: 058
     Dates: start: 20221027
  2. HUMIRA [Suspect]
     Active Substance: ADALIMUMAB
     Dosage: CITRATE FREE
     Route: 058
     Dates: start: 202211
  3. HUMIRA [Suspect]
     Active Substance: ADALIMUMAB
     Route: 058

REACTIONS (15)
  - Knee operation [Unknown]
  - Stress fracture [Unknown]
  - Therapeutic response shortened [Unknown]
  - Diabetes mellitus [Unknown]
  - Onychomycosis [Recovered/Resolved]
  - Psoriasis [Recovering/Resolving]
  - Joint swelling [Unknown]
  - Joint lock [Unknown]
  - Expired product administered [Unknown]
  - Peripheral swelling [Recovering/Resolving]
  - Knee operation [Unknown]
  - Cervical vertebral fracture [Unknown]
  - Pain [Unknown]
  - Swollen tongue [Unknown]
  - Glycosylated haemoglobin decreased [Unknown]

NARRATIVE: CASE EVENT DATE: 20220101
